FAERS Safety Report 8456095-1 (Version None)
Quarter: 2012Q2

REPORT INFORMATION
  Report Type: 
  Country: None (occurrence: None)
  Receive Date: 20120621
  Receipt Date: 20120618
  Transmission Date: 20120825
  Serious: Yes (Other)
  Sender: FDA-Public Use
  Company Number: PHHY2012AR052598

PATIENT
  Sex: Male

DRUGS (1)
  1. DIOVAN HCT [Suspect]
     Indication: BLOOD PRESSURE
     Dosage: 1 DF (160 MG VALSAR AND 25MG AMLO), DAILY

REACTIONS (2)
  - CORONARY ARTERY OCCLUSION [None]
  - BLOOD CHOLESTEROL ABNORMAL [None]
